FAERS Safety Report 4394800-4 (Version None)
Quarter: 2004Q3

REPORT INFORMATION
  Report Type: 
  Country: None (occurrence: None)
  Receive Date: 20040706
  Receipt Date: 20040628
  Transmission Date: 20050211
  Serious: Yes (Hospitalization, Other)
  Sender: FDA-Public Use
  Company Number: 2003-09-3209

PATIENT
  Sex: Male

DRUGS (4)
  1. INTRON A [Suspect]
     Indication: METASTATIC RENAL CELL CARCINOMA
     Dosage: 2.5-10MIU SUBCUTANEOUS; SEE IMAGE
     Route: 058
     Dates: start: 20030903, end: 20031008
  2. ACETAMINOPHEN [Concomitant]
  3. NIFEDIPINE [Concomitant]
  4. METOCLOPRAMIDE [Concomitant]

REACTIONS (9)
  - BONE SCAN ABNORMAL [None]
  - DRUG TOXICITY [None]
  - FALL [None]
  - FATIGUE [None]
  - FEMUR FRACTURE [None]
  - GROIN PAIN [None]
  - LETHARGY [None]
  - MALIGNANT NEOPLASM PROGRESSION [None]
  - METASTASES TO BONE [None]
